FAERS Safety Report 22973411 (Version 7)
Quarter: 2024Q4

REPORT INFORMATION
  Report Type: Spontaneous
  Country: US (occurrence: US)
  Receive Date: 20230922
  Receipt Date: 20241015
  Transmission Date: 20250115
  Serious: Yes (Other)
  Sender: BRISTOL-MYERS SQUIBB COMPANY
  Company Number: US-BRISTOL-MYERS SQUIBB COMPANY-2023-134973

PATIENT
  Age: 74 Year
  Sex: Female
  Weight: 52.62 kg

DRUGS (1)
  1. REVLIMID [Suspect]
     Active Substance: LENALIDOMIDE
     Indication: Plasma cell myeloma
     Dosage: FREQUENCY:  1 CAPSULE DAILY FOR 21 DAYS, THEN 7 DAYS OFF
     Route: 048
     Dates: start: 20231001

REACTIONS (10)
  - Constipation [Recovering/Resolving]
  - Nasopharyngitis [Not Recovered/Not Resolved]
  - Pigmentation disorder [Unknown]
  - Gastrointestinal motility disorder [Unknown]
  - Neuralgia [Recovering/Resolving]
  - Myalgia [Recovering/Resolving]
  - Arthritis [Recovering/Resolving]
  - Spinal fracture [Recovering/Resolving]
  - Dry skin [Recovering/Resolving]
  - Diarrhoea [Recovering/Resolving]
